FAERS Safety Report 15001309 (Version 1)
Quarter: 2018Q2

REPORT INFORMATION
  Report Type: Spontaneous
  Country: US (occurrence: US)
  Receive Date: 20180524
  Receipt Date: 20180524
  Transmission Date: 20180711
  Serious: Yes (Other)
  Sender: FDA-Public Use
  Company Number: None

PATIENT
  Age: 61 Year
  Sex: Female
  Weight: 72 kg

DRUGS (7)
  1. NEURONTIN [Concomitant]
     Active Substance: GABAPENTIN
  2. PROZAC [Concomitant]
     Active Substance: FLUOXETINE HYDROCHLORIDE
  3. LEVOTHYROXINE. [Concomitant]
     Active Substance: LEVOTHYROXINE
  4. CITRUCEL FIBER TABLETS [Concomitant]
  5. TRIAMCINOLONE [Suspect]
     Active Substance: TRIAMCINOLONE
     Indication: PRURITUS
     Route: 061
     Dates: start: 20151030, end: 20161112
  6. ANTIHISTAMINES [Concomitant]
     Active Substance: ANTIHISTAMINES NOS
  7. MELATONIN [Concomitant]
     Active Substance: MELATONIN

REACTIONS (7)
  - Hyperaesthesia [None]
  - Skin odour abnormal [None]
  - Drug ineffective [None]
  - Insomnia [None]
  - Dermatitis [None]
  - Skin haemorrhage [None]
  - Night sweats [None]

NARRATIVE: CASE EVENT DATE: 20151030
